FAERS Safety Report 14528903 (Version 1)
Quarter: 2018Q1

REPORT INFORMATION
  Report Type: Spontaneous
  Country: US (occurrence: US)
  Receive Date: 20180213
  Receipt Date: 20180213
  Transmission Date: 20180509
  Serious: Yes (Other)
  Sender: FDA-Public Use
  Company Number: None

PATIENT
  Age: 14 Year
  Sex: Male
  Weight: 110 kg

DRUGS (1)
  1. LEVETIRACETAM 750MG [Suspect]
     Active Substance: LEVETIRACETAM
     Indication: ADJUSTMENT DISORDER
     Route: 048

REACTIONS (2)
  - Irritability [None]
  - Abnormal behaviour [None]

NARRATIVE: CASE EVENT DATE: 201711
